FAERS Safety Report 6326971-4 (Version None)
Quarter: 2009Q3

REPORT INFORMATION
  Report Type: 
  Country: None (occurrence: None)
  Receive Date: 20090821
  Receipt Date: 20090810
  Transmission Date: 20100115
  Serious: Yes (Other)
  Sender: FDA-Public Use
  Company Number: ADR11972009 (ARROW LOG NO. 2007AG0017)

PATIENT
  Age: 58 Year
  Sex: Male

DRUGS (7)
  1. PRAVASTATIN [Suspect]
  2. SIMVASTATIN [Suspect]
  3. AMLODIPINE MALEATE [Concomitant]
  4. BISOPROLOL [Concomitant]
  5. RAMIPRIL [Concomitant]
  6. SPIRONOLACTONE [Concomitant]
  7. WARFARIN SODIUM [Concomitant]

REACTIONS (8)
  - AREFLEXIA [None]
  - BIOPSY PERIPHERAL NERVE ABNORMAL [None]
  - CSF PROTEIN INCREASED [None]
  - ELECTROMYOGRAM ABNORMAL [None]
  - GUILLAIN-BARRE SYNDROME [None]
  - HYPOREFLEXIA [None]
  - MUSCULAR WEAKNESS [None]
  - SENSORY LOSS [None]
